FAERS Safety Report 11170863 (Version 1)
Quarter: 2015Q2

REPORT INFORMATION
  Report Type: Spontaneous
  Country: US (occurrence: None)
  Receive Date: 20150605
  Receipt Date: 20150605
  Transmission Date: 20150821
  Serious: No
  Sender: FDA-Public Use
  Company Number: None

PATIENT
  Age: 47 Year
  Sex: Female

DRUGS (1)
  1. TECFIDERA [Suspect]
     Active Substance: DIMETHYL FUMARATE
     Route: 048
     Dates: start: 20150429, end: 20150529

REACTIONS (3)
  - Headache [None]
  - Abdominal discomfort [None]
  - Feeling hot [None]

NARRATIVE: CASE EVENT DATE: 20150603
